FAERS Safety Report 5259864-4 (Version None)
Quarter: 2007Q1

REPORT INFORMATION
  Report Type: 
  Country: None (occurrence: None)
  Receive Date: 20070307
  Receipt Date: 20070220
  Transmission Date: 20070707
  Serious: Yes (Other)
  Sender: FDA-Public Use
  Company Number: 8011436

PATIENT
  Age: 10 Year
  Sex: Male
  Weight: 46.81 kg

DRUGS (3)
  1. METADATE CD [Suspect]
     Indication: ATTENTION DEFICIT/HYPERACTIVITY DISORDER
     Dosage: 20 MG /D PO
     Route: 048
     Dates: start: 20040101, end: 20050701
  2. METADATE CD [Suspect]
     Indication: ATTENTION DEFICIT/HYPERACTIVITY DISORDER
     Dosage: 30 MG /D PO
     Route: 048
     Dates: start: 20050825
  3. FLUOXETINE HCL [Concomitant]

REACTIONS (8)
  - ABNORMAL BEHAVIOUR [None]
  - AGGRESSION [None]
  - ANGER [None]
  - DRUG DOSE OMISSION [None]
  - HOMICIDAL IDEATION [None]
  - INAPPROPRIATE SCHEDULE OF DRUG ADMINISTRATION [None]
  - SCHIZOPHRENIFORM DISORDER [None]
  - SUICIDAL IDEATION [None]
